FAERS Safety Report 9167686 (Version 1)
Quarter: 2013Q1

REPORT INFORMATION
  Report Type: Spontaneous
  Country: US (occurrence: US)
  Receive Date: 20130318
  Receipt Date: 20130318
  Transmission Date: 20140127
  Serious: Yes (Other)
  Sender: FDA-Public Use
  Company Number: US-PFIZER INC-2013086257

PATIENT
  Age: 78 Year
  Sex: Female

DRUGS (10)
  1. FISH OIL [Concomitant]
     Dosage: 1000 MG, (SOFTGEL)
  2. CENTRUM [Concomitant]
     Dosage: UNK
  3. PREDNISONE [Concomitant]
     Dosage: 5 MG, UNK
  4. CARVEDILOL [Concomitant]
     Dosage: 3.125 MG, UNK
  5. LORAZEPAM [Concomitant]
     Dosage: 0.5 MG, UNK
  6. SULFASALAZINE [Concomitant]
     Dosage: 500 MG, UNK
  7. FOSAMAX [Concomitant]
     Dosage: 35 MG, UNK
  8. BABY ASPIRIN [Concomitant]
     Dosage: 81 MG, UNK
  9. XELJANZ [Suspect]
     Indication: RHEUMATOID ARTHRITIS
     Dosage: 5 MG, 2X/DAY (1 TABLET)
     Route: 048
     Dates: start: 201302
  10. CALCIUM CITRATE [Concomitant]
     Dosage: 200 MG, UNK

REACTIONS (1)
  - Urinary tract infection [Unknown]
